FAERS Safety Report 12228474 (Version 1)
Quarter: 2016Q2

REPORT INFORMATION
  Report Type: Spontaneous
  Country: US (occurrence: US)
  Receive Date: 20160401
  Receipt Date: 20160401
  Transmission Date: 20160815
  Serious: No
  Sender: FDA-Public Use
  Company Number: US-PFIZER INC-2016165436

PATIENT
  Age: 64 Year
  Sex: Female

DRUGS (4)
  1. TYLENOL 3 EXTRA STRENGTH [Concomitant]
     Dosage: TWICE OR MIGHT BE THREE TIMES A DAY
  2. OXYCONTIN [Concomitant]
     Active Substance: OXYCODONE HYDROCHLORIDE
     Dosage: 10 MG, ONE TABLET EVERY 8 HOURS
  3. LYRICA [Suspect]
     Active Substance: PREGABALIN
     Indication: NERVE INJURY
     Dosage: 100 MG, ONCE EVERY 12 HOURS
     Route: 048
     Dates: start: 201512
  4. AMLODIPINE [Concomitant]
     Active Substance: AMLODIPINE BESYLATE
     Indication: HYPERTENSION
     Dosage: 10 MG, 1X/DAY

REACTIONS (1)
  - Drug ineffective [Unknown]
